FAERS Safety Report 6124695-X (Version None)
Quarter: 2009Q1

REPORT INFORMATION
  Report Type: 
  Country: None (occurrence: None)
  Receive Date: 20090319
  Receipt Date: 20090310
  Transmission Date: 20090719
  Serious: Yes (Hospitalization, Other)
  Sender: FDA-Public Use
  Company Number: JP-SANOFI-SYNTHELABO-A01200900760

PATIENT
  Sex: Male
  Weight: 41 kg

DRUGS (26)
  1. ELPLAT [Suspect]
     Indication: COLON CANCER
     Route: 041
     Dates: start: 20090105, end: 20090105
  2. FULCALIQ 2 [Concomitant]
     Indication: VITAMIN SUPPLEMENTATION
     Route: 042
     Dates: start: 20090227
  3. INTRALIPID 10% [Concomitant]
     Indication: NUTRITIONAL SUPPORT
     Dosage: UNK
     Route: 042
     Dates: start: 20090224
  4. TRIAZOLAM [Concomitant]
     Route: 048
     Dates: start: 20090212
  5. CRAVIT [Concomitant]
     Dosage: UNK
     Route: 048
     Dates: start: 20090211, end: 20090217
  6. AMINO ACID INJ [Concomitant]
     Indication: AMINO ACID LEVEL DECREASED
     Route: 042
     Dates: start: 20090129
  7. NEO-MINOPHAGEN C [Concomitant]
     Indication: HEPATIC FUNCTION ABNORMAL
     Route: 042
     Dates: start: 20090128
  8. ROCEPHIN [Concomitant]
     Dosage: UNK
     Route: 042
     Dates: start: 20090127, end: 20090223
  9. PENTCILLIN [Concomitant]
     Dosage: UNK
     Route: 042
     Dates: start: 20090123, end: 20090127
  10. ELEMENMIC [Concomitant]
     Indication: MINERAL SUPPLEMENTATION
     Route: 042
     Dates: start: 20090117
  11. CIPROFLOXACIN HCL [Concomitant]
     Dosage: UNK
     Route: 042
     Dates: start: 20090114, end: 20090123
  12. AGENTS RELATING TO BLOOD AND BODY FLUIDES, N.E.C [Concomitant]
     Dosage: UNK
     Route: 058
     Dates: start: 20090114, end: 20090117
  13. COAHIBITOR [Concomitant]
     Dosage: UNK
     Route: 042
     Dates: start: 20090113, end: 20090117
  14. DALACIN-S [Concomitant]
     Dosage: UNK
     Route: 042
     Dates: start: 20090110, end: 20090114
  15. SAXIZON [Concomitant]
     Route: 042
     Dates: start: 20090111
  16. POLYGAM S/D [Concomitant]
     Dosage: UNK
     Route: 030
     Dates: start: 20090110
  17. MEROPEN [Concomitant]
     Dosage: UNK
     Route: 042
     Dates: start: 20090110
  18. GASTER [Concomitant]
     Indication: GASTRITIS PROPHYLAXIS
     Route: 048
     Dates: start: 20090105, end: 20090111
  19. LOPEMIN [Concomitant]
     Indication: DIARRHOEA
     Dosage: UNK
     Route: 048
     Dates: start: 20081203, end: 20090111
  20. VOLTAREN [Concomitant]
     Indication: CHEST PAIN
     Dosage: UNK
     Route: 048
     Dates: end: 20090111
  21. HALCION [Concomitant]
     Indication: INSOMNIA
     Route: 048
     Dates: end: 20090111
  22. FLUOROURACIL [Concomitant]
     Indication: COLON CANCER
     Dosage: 438MG/BODY (300MG/M2) IN BOLUS THEN 2920MG/BODY/D1-2 (2000MG/M2/D1-2)
     Route: 040
     Dates: start: 20090105, end: 20090105
  23. FLUOROURACIL [Concomitant]
     Route: 041
     Dates: start: 20090105, end: 20090105
  24. LEVOFOLINATE [Concomitant]
     Indication: COLON CANCER
     Route: 041
     Dates: start: 20090105, end: 20090105
  25. ISOVORIN [Concomitant]
     Indication: COLON CANCER
     Route: 041
     Dates: start: 20081119, end: 20081119
  26. CEDIRANIB [Concomitant]
     Indication: COLON CANCER
     Dosage: UNK
     Route: 048
     Dates: start: 20081119, end: 20090110

REACTIONS (5)
  - DISSEMINATED INTRAVASCULAR COAGULATION [None]
  - NEUTROPHIL COUNT DECREASED [None]
  - PLATELET COUNT DECREASED [None]
  - PNEUMONIA ASPIRATION [None]
  - WHITE BLOOD CELL COUNT DECREASED [None]
